FAERS Safety Report 9509860 (Version 1)
Quarter: 2013Q3

REPORT INFORMATION
  Report Type: Spontaneous
  Country: US (occurrence: US)
  Receive Date: 20130909
  Receipt Date: 20130909
  Transmission Date: 20140515
  Serious: No
  Sender: FDA-Public Use
  Company Number: US-BRISTOL-MYERS SQUIBB COMPANY-17090853

PATIENT
  Sex: Female

DRUGS (3)
  1. ABILIFY [Suspect]
     Indication: ANXIETY
  2. ABILIFY [Suspect]
     Indication: BIPOLAR I DISORDER
  3. COGENTIN [Concomitant]

REACTIONS (4)
  - Memory impairment [Unknown]
  - Product taste abnormal [Unknown]
  - Foreign body [Unknown]
  - Circumstance or information capable of leading to medication error [Unknown]
